FAERS Safety Report 16103432 (Version 1)
Quarter: 2019Q1

REPORT INFORMATION
  Report Type: Spontaneous
  Country: HR (occurrence: HR)
  Receive Date: 20190322
  Receipt Date: 20190322
  Transmission Date: 20190418
  Serious: Yes (Other)
  Sender: FDA-Public Use
  Company Number: HR-TEVA-2019-HR-1026825

PATIENT
  Age: 62 Year
  Sex: Female
  Weight: 70 kg

DRUGS (2)
  1. RISSET [Suspect]
     Active Substance: RISPERIDONE
     Indication: ACUTE PSYCHOSIS
     Dosage: 4 MILLIGRAM DAILY;
     Route: 048
     Dates: start: 201812, end: 201901
  2. PRAXITEN 15 [Concomitant]
     Active Substance: OXAZEPAM
     Indication: ACUTE PSYCHOSIS
     Dosage: 15 MILLIGRAM DAILY;
     Route: 048
     Dates: start: 201812

REACTIONS (2)
  - Sensory disturbance [Recovered/Resolved]
  - Limb discomfort [Recovered/Resolved]

NARRATIVE: CASE EVENT DATE: 201812
